FAERS Safety Report 10879081 (Version 1)
Quarter: 2015Q1

REPORT INFORMATION
  Report Type: Spontaneous
  Country: US (occurrence: None)
  Receive Date: 20150224
  Receipt Date: 20150224
  Transmission Date: 20150721
  Serious: No
  Sender: FDA-Public Use
  Company Number: None

PATIENT
  Age: 10 Year
  Sex: Male
  Weight: 36.29 kg

DRUGS (5)
  1. TAMIFLU [Suspect]
     Active Substance: OSELTAMIVIR PHOSPHATE
     Indication: INFLUENZA
     Dosage: I PILL, TWICE DAILY, TAKEN BY MOUTH
     Route: 048
     Dates: start: 20150215, end: 20150216
  2. ABUTEROL BY NEBULIZERE [Concomitant]
  3. ALBUTEROL INHALER [Concomitant]
     Active Substance: ALBUTEROL
  4. SIIGULAIR [Concomitant]
  5. ZYRTEC [Concomitant]
     Active Substance: CETIRIZINE HYDROCHLORIDE

REACTIONS (2)
  - Peripheral swelling [None]
  - Rash [None]

NARRATIVE: CASE EVENT DATE: 20150217
